FAERS Safety Report 10191791 (Version 1)
Quarter: 2014Q2

REPORT INFORMATION
  Report Type: Spontaneous
  Country: MY (occurrence: MY)
  Receive Date: 20140523
  Receipt Date: 20140523
  Transmission Date: 20141212
  Serious: Yes (Hospitalization)
  Sender: FDA-Public Use
  Company Number: MY-ACTAVIS-2014-10948

PATIENT
  Age: 23 Year
  Sex: Female

DRUGS (5)
  1. PREDNISOLONE (UNKNOWN) [Suspect]
     Indication: PEMPHIGUS
     Dosage: 40 MG, DAILY
     Route: 048
  2. ACYCLOVIR (UNKNOWN) [Suspect]
     Indication: ORAL DISORDER
     Dosage: UNKNOWN
     Route: 048
  3. ACYCLOVIR (UNKNOWN) [Suspect]
     Indication: SKIN ULCER
  4. CLOXACILLIN [Suspect]
     Indication: ORAL DISORDER
     Dosage: UNKNOWN
     Route: 065
  5. CLOXACILLIN [Suspect]
     Indication: SKIN ULCER

REACTIONS (2)
  - Premature labour [Not Recovered/Not Resolved]
  - Caesarean section [Unknown]
